FAERS Safety Report 7190773-X (Version None)
Quarter: 2010Q4

REPORT INFORMATION
  Report Type: 
  Country: None (occurrence: None)
  Receive Date: 20101213
  Receipt Date: 20101129
  Transmission Date: 20110411
  Serious: Yes (Hospitalization)
  Sender: FDA-Public Use
  Company Number: 016873

PATIENT
  Sex: Female
  Weight: 75 kg

DRUGS (7)
  1. CIMZIA [Suspect]
     Indication: CROHN'S DISEASE
     Dosage: 400 MG 1X/MONTH SUBCUTANEOUS, SUBCUTANEOUS
     Route: 058
     Dates: start: 20081222
  2. CIMZIA [Suspect]
     Indication: CROHN'S DISEASE
     Dosage: 400 MG 1X/MONTH SUBCUTANEOUS, SUBCUTANEOUS
     Route: 058
     Dates: start: 20101122
  3. AZATHIOPRINE [Concomitant]
  4. VITAMIN B-12 [Concomitant]
  5. FOLIC ACID [Concomitant]
  6. ENTOCORT EC [Concomitant]
  7. AVELOX [Concomitant]

REACTIONS (7)
  - CHEST DISCOMFORT [None]
  - CHEST PAIN [None]
  - DEHYDRATION [None]
  - DYSPNOEA [None]
  - MUSCULOSKELETAL PAIN [None]
  - PNEUMONIA [None]
  - PRODUCTIVE COUGH [None]
